FAERS Safety Report 9164716 (Version 1)
Quarter: 2013Q1

REPORT INFORMATION
  Report Type: Spontaneous
  Country: US (occurrence: None)
  Receive Date: 20130301
  Receipt Date: 20130301
  Transmission Date: 20140127
  Serious: Yes (Hospitalization)
  Sender: FDA-Public Use
  Company Number: 2013SUN00200

PATIENT
  Age: 78 Year
  Sex: Female

DRUGS (1)
  1. SUMATRIPTAN SUCCINATE TABS 25MG (SUMATRIPTAN SUCCINATE) [Suspect]
     Indication: MIGRAINE
     Route: 048

REACTIONS (5)
  - Renal infarct [None]
  - Polyuria [None]
  - Nausea [None]
  - Hypotension [None]
  - Refusal of treatment by patient [None]
